FAERS Safety Report 6972009-5 (Version None)
Quarter: 2010Q3

REPORT INFORMATION
  Report Type: 
  Country: None (occurrence: None)
  Receive Date: 20100908
  Receipt Date: 20100908
  Transmission Date: 20110219
  Serious: Yes (Life-Threatening, Hospitalization, Disabling, Other)
  Sender: FDA-Public Use
  Company Number: None

PATIENT
  Sex: Female
  Weight: 117.4816 kg

DRUGS (1)
  1. ACTOS [Suspect]
     Indication: DIABETES MELLITUS
     Dosage: 15 MG 1XDAILY
     Dates: start: 20070501, end: 20100503

REACTIONS (7)
  - COLLAPSE OF LUNG [None]
  - PAIN IN EXTREMITY [None]
  - PNEUMONIA [None]
  - PULMONARY THROMBOSIS [None]
  - RENAL FAILURE [None]
  - SKIN DISCOLOURATION [None]
  - VEIN DISORDER [None]
